FAERS Safety Report 12077392 (Version 1)
Quarter: 2016Q1

REPORT INFORMATION
  Report Type: Spontaneous
  Country: US (occurrence: US)
  Receive Date: 20160215
  Receipt Date: 20160215
  Transmission Date: 20160526
  Serious: Yes (Death)
  Sender: FDA-Public Use
  Company Number: US-FRI-1000082628

PATIENT
  Sex: Female

DRUGS (8)
  1. ARICEPT [Concomitant]
     Active Substance: DONEPEZIL HYDROCHLORIDE
     Dosage: 5MG
  2. FIBER LAXATIVE [Concomitant]
     Active Substance: CALCIUM POLYCARBOPHIL
  3. NAMENDA XR [Suspect]
     Active Substance: MEMANTINE HYDROCHLORIDE
     Indication: DEMENTIA
     Dosage: 28MG
     Dates: start: 20140528
  4. NAMENDA XR [Suspect]
     Active Substance: MEMANTINE HYDROCHLORIDE
     Dosage: 20MG
     Dates: start: 20070712, end: 20140527
  5. KLOR-CON [Concomitant]
     Active Substance: POTASSIUM CHLORIDE
     Dosage: 10MG
  6. NAMENDA XR [Suspect]
     Active Substance: MEMANTINE HYDROCHLORIDE
     Dosage: 10MG
     Dates: start: 2006, end: 20070711
  7. LASIX [Concomitant]
     Active Substance: FUROSEMIDE
     Dosage: 40MG
  8. DETROL LA [Concomitant]
     Active Substance: TOLTERODINE TARTRATE

REACTIONS (1)
  - Cardiac arrest [Fatal]
